FAERS Safety Report 24863713 (Version 1)
Quarter: 2025Q1

REPORT INFORMATION
  Report Type: Spontaneous
  Country: US (occurrence: US)
  Receive Date: 20250120
  Receipt Date: 20250120
  Transmission Date: 20250409
  Serious: No
  Sender: Phathom Pharmaceuticals
  Company Number: US-PHATHOM PHARMACEUTICALS INC.-2024PHT01378

PATIENT
  Age: 36 Year
  Sex: Female

DRUGS (1)
  1. VOQUEZNA DUAL PAK [Suspect]
     Active Substance: AMOXICILLIN\VONOPRAZAN FUMARATE
     Indication: Helicobacter infection
     Dosage: 1 TABLETS, 2X/DAY
     Route: 048
     Dates: start: 20240409, end: 20241121

REACTIONS (2)
  - Drug ineffective [Recovered/Resolved]
  - Incorrect product administration duration [Recovered/Resolved]

NARRATIVE: CASE EVENT DATE: 20240409
